FAERS Safety Report 23804538 (Version 3)
Quarter: 2024Q2

REPORT INFORMATION
  Report Type: Spontaneous
  Country: US (occurrence: US)
  Receive Date: 20240501
  Receipt Date: 20240508
  Transmission Date: 20240716
  Serious: No
  Sender: FDA-Public Use
  Company Number: US-PFIZER INC-202400097645

PATIENT
  Age: 60 Year
  Sex: Male
  Weight: 142.88 kg

DRUGS (1)
  1. TIKOSYN [Suspect]
     Active Substance: DOFETILIDE
     Indication: Sinus rhythm
     Dosage: 500 UG, 2X/DAY
     Dates: start: 202401

REACTIONS (1)
  - Weight increased [Unknown]
